FAERS Safety Report 21762667 (Version 1)
Quarter: 2022Q4

REPORT INFORMATION
  Report Type: Spontaneous
  Country: IT (occurrence: IT)
  Receive Date: 20221221
  Receipt Date: 20221221
  Transmission Date: 20230113
  Serious: Yes (Other)
  Sender: FDA-Public Use
  Company Number: IT-TEVA-2022-IT-2838297

PATIENT

DRUGS (1)
  1. CISPLATIN [Suspect]
     Active Substance: CISPLATIN
     Indication: Chordoma
     Dosage: DOSE: 20-30MG/M2 WEEKLY
     Route: 042

REACTIONS (2)
  - Diarrhoea [Unknown]
  - Fatigue [Unknown]
